FAERS Safety Report 6366710-4 (Version None)
Quarter: 2009Q3

REPORT INFORMATION
  Report Type: 
  Country: None (occurrence: None)
  Receive Date: 20090921
  Receipt Date: 20090917
  Transmission Date: 20100115
  Serious: Yes (Other)
  Sender: FDA-Public Use
  Company Number: IN-ROXANE LABORATORIES, INC.-2009-RO-00946RO

PATIENT
  Age: 73 Year
  Sex: Female

DRUGS (4)
  1. DEXAMETHASONE [Suspect]
     Indication: PEMPHIGUS
  2. CYCLOPHOSPHAMIDE [Suspect]
     Indication: PEMPHIGUS
  3. SODIUM CHLORIDE [Concomitant]
     Indication: CYSTITIS HAEMORRHAGIC
  4. TOLTERODINE TARTRATE [Concomitant]
     Indication: DYSURIA

REACTIONS (1)
  - CYSTITIS HAEMORRHAGIC [None]
